FAERS Safety Report 5140694-9 (Version None)
Quarter: 2006Q4

REPORT INFORMATION
  Report Type: 
  Country: None (occurrence: None)
  Receive Date: 20061025
  Receipt Date: 20061012
  Transmission Date: 20070319
  Serious: Yes (Hospitalization)
  Sender: FDA-Public Use
  Company Number: 2006067913

PATIENT
  Age: 64 Year
  Sex: Male

DRUGS (14)
  1. SUTENT [Suspect]
     Indication: METASTATIC RENAL CELL CARCINOMA
     Dosage: 50 MG (50 MG, DAILY- INTERVAL:  EVERYDAY), ORAL
     Route: 048
     Dates: start: 20060208, end: 20060411
  2. AMLODIPINE [Concomitant]
  3. TAREG (VALSARTAN) [Concomitant]
  4. ACEBUTOLOL [Concomitant]
  5. ASPIRIN [Concomitant]
  6. BUFLOMEDIL (BUFLOMEDIL) [Concomitant]
  7. PAROXETINE HCL [Concomitant]
  8. AUGMENTIN '125' [Concomitant]
  9. DURAGESIC-100 [Concomitant]
  10. EUPRESSYL (URAPIDIL) [Concomitant]
  11. MORPHINE SULFATE [Concomitant]
  12. DOMPERIDONE (DOMPERIDONE) [Concomitant]
  13. ACETAMINOPHEN [Concomitant]
  14. ZOMETA [Concomitant]

REACTIONS (7)
  - ARTERITIS [None]
  - ESCHAR [None]
  - NECROSIS [None]
  - PAIN [None]
  - TOE AMPUTATION [None]
  - ULCER [None]
  - WOUND [None]
